FAERS Safety Report 24822525 (Version 1)
Quarter: 2025Q1

REPORT INFORMATION
  Report Type: Spontaneous
  Country: SE (occurrence: SE)
  Receive Date: 20250109
  Receipt Date: 20250109
  Transmission Date: 20250409
  Serious: Yes (Hospitalization)
  Sender: NOVO NORDISK
  Company Number: None

PATIENT
  Age: 59 Year
  Sex: Male

DRUGS (9)
  1. WARFARIN SODIUM [Concomitant]
     Active Substance: WARFARIN SODIUM
     Route: 048
  2. WARFARIN SODIUM [Concomitant]
     Active Substance: WARFARIN SODIUM
     Route: 048
  3. WARFARIN SODIUM [Concomitant]
     Active Substance: WARFARIN SODIUM
     Indication: Product used for unknown indication
     Route: 048
  4. ENTRESTO [Concomitant]
     Active Substance: SACUBITRIL\VALSARTAN
     Indication: Product used for unknown indication
     Route: 048
  5. BISOPROLOL [Concomitant]
     Active Substance: BISOPROLOL
     Indication: Product used for unknown indication
     Route: 048
  6. RYBELSUS [Suspect]
     Active Substance: SEMAGLUTIDE
     Indication: Weight control
     Dosage: 7 MG, QD
     Route: 048
     Dates: start: 20240816, end: 20241109
  7. SPIRONOLACTONE [Concomitant]
     Active Substance: SPIRONOLACTONE
     Indication: Product used for unknown indication
     Dosage: 25 MG, QD
     Route: 048
  8. CORDARONE [Concomitant]
     Active Substance: AMIODARONE HYDROCHLORIDE
     Indication: Product used for unknown indication
     Dosage: 20 MG, QD
     Route: 048
  9. PANTOPRAZOL 2CARE4 [Concomitant]
     Indication: Product used for unknown indication
     Dosage: 40 MG, QD
     Route: 048

REACTIONS (2)
  - Cardiac ventricular thrombosis [Not Recovered/Not Resolved]
  - Product use in unapproved indication [Unknown]

NARRATIVE: CASE EVENT DATE: 20240816
